FAERS Safety Report 5128767-8 (Version None)
Quarter: 2006Q4

REPORT INFORMATION
  Report Type: 
  Country: None (occurrence: None)
  Receive Date: 20061017
  Receipt Date: 20061013
  Transmission Date: 20070319
  Serious: Yes (Hospitalization)
  Sender: FDA-Public Use
  Company Number: GB-BRISTOL-MYERS SQUIBB COMPANY-13540166

PATIENT
  Sex: Male

DRUGS (5)
  1. APROVEL [Suspect]
     Indication: HYPERTENSION
     Dosage: IRBESARTAN 150 MG STARTED 25-SEPT-2006 AND INCREASED TO 300 MG.
  2. PRAVASTATIN [Concomitant]
  3. DIPYRIDAMOLE [Concomitant]
  4. DOXAZOSIN [Concomitant]
  5. LEVOTHYROXINE SODIUM [Concomitant]

REACTIONS (1)
  - CONVULSION [None]
